FAERS Safety Report 18467191 (Version 1)
Quarter: 2020Q4

REPORT INFORMATION
  Report Type: Spontaneous
  Country: US (occurrence: US)
  Receive Date: 20201105
  Receipt Date: 20201105
  Transmission Date: 20210114
  Serious: No
  Sender: FDA-Public Use
  Company Number: US-AMGEN-USASP2020176041

PATIENT
  Age: 5 Year
  Sex: Female

DRUGS (4)
  1. VITAMIN D [COLECALCIFEROL] [Concomitant]
     Active Substance: CHOLECALCIFEROL
  2. CALCIUM [Concomitant]
     Active Substance: CALCIUM
     Dosage: UNK UNK, QD
     Route: 048
  3. XGEVA [Suspect]
     Active Substance: DENOSUMAB
     Dosage: LOADING DOSES ON DAYS 1, 8, AND 15 OF CYCLE 1.
     Route: 058
  4. XGEVA [Suspect]
     Active Substance: DENOSUMAB
     Indication: BONE GIANT CELL TUMOUR BENIGN
     Dosage: 70 MILLIGRAM/SQ. METER,(MAX 120 MG)
     Route: 058

REACTIONS (4)
  - Hypocalcaemia [Unknown]
  - Hypercalcaemia [Unknown]
  - Off label use [Unknown]
  - Rebound effect [Unknown]
